FAERS Safety Report 18887485 (Version 1)
Quarter: 2021Q1

REPORT INFORMATION
  Report Type: Spontaneous
  Country: FR (occurrence: FR)
  Receive Date: 20210212
  Receipt Date: 20210212
  Transmission Date: 20210420
  Serious: Yes (Other)
  Sender: FDA-Public Use
  Company Number: FR-ANIPHARMA-2021-FR-000037

PATIENT
  Age: 74 Year
  Sex: Male

DRUGS (6)
  1. SECTRAL [Concomitant]
     Active Substance: ACEBUTOLOL HYDROCHLORIDE
     Dosage: UNKNOWN DOSE AND FREQUENCY
     Route: 065
  2. CORDARONE [Suspect]
     Active Substance: AMIODARONE HYDROCHLORIDE
     Dosage: UNKNOWN DOSE AND FREQUENCY
     Route: 065
  3. CORGARD [Suspect]
     Active Substance: NADOLOL
     Dosage: INCREASED THE DOSAGE AT A RATE OF HALF TABLET THREE TIMES A DAY
     Route: 065
  4. CANDESARTAN CILEXETIL. [Suspect]
     Active Substance: CANDESARTAN CILEXETIL
     Indication: PRODUCT USED FOR UNKNOWN INDICATION
     Dosage: UNKNOWN DOSE AND FREQUENCY
     Route: 048
  5. CRESTOR [Suspect]
     Active Substance: ROSUVASTATIN CALCIUM
     Dosage: UNKNOWN DOSE AND FREQUENCY
     Route: 048
  6. FORLAX [Concomitant]
     Active Substance: POLYETHYLENE GLYCOL 4000
     Dosage: UNKNOWN DOSE AND FREQUENCY
     Route: 065

REACTIONS (12)
  - Fatigue [Unknown]
  - Vomiting [Unknown]
  - Cardiomyopathy [Unknown]
  - Stress [Unknown]
  - Dizziness [Unknown]
  - Tachycardia [Unknown]
  - Hyperthyroidism [Unknown]
  - Fall [Unknown]
  - Hypertension [Unknown]
  - Dyspnoea [Unknown]
  - Discomfort [Unknown]
  - Cardiac disorder [Unknown]
